FAERS Safety Report 22734606 (Version 3)
Quarter: 2023Q4

REPORT INFORMATION
  Report Type: Spontaneous
  Country: IN (occurrence: None)
  Receive Date: 20230721
  Receipt Date: 20231021
  Transmission Date: 20240110
  Serious: Yes (Other)
  Sender: FDA-Public Use
  Company Number: IN-ROCHE-3390358

PATIENT
  Age: 49 Year
  Sex: Female

DRUGS (1)
  1. TECENTRIQ [Suspect]
     Active Substance: ATEZOLIZUMAB
     Indication: Ovarian cancer metastatic
     Route: 041
     Dates: start: 20230617

REACTIONS (4)
  - Disease progression [Unknown]
  - Off label use [Unknown]
  - Intentional product use issue [Unknown]
  - Ovarian neoplasm surgery [Unknown]
